FAERS Safety Report 9613077 (Version 1)
Quarter: 2013Q4

REPORT INFORMATION
  Report Type: Spontaneous
  Country: NL (occurrence: NL)
  Receive Date: 20131010
  Receipt Date: 20131010
  Transmission Date: 20140711
  Serious: Yes (Other)
  Sender: FDA-Public Use
  Company Number: PHHY2013NL113513

PATIENT
  Sex: 0

DRUGS (1)
  1. CARBAMAZEPINE [Suspect]
     Dosage: UNK UKN, UNK

REACTIONS (1)
  - Convulsion [Unknown]
